FAERS Safety Report 4744682-3 (Version None)
Quarter: 2005Q3

REPORT INFORMATION
  Report Type: 
  Country: None (occurrence: None)
  Receive Date: 20050815
  Receipt Date: 20050804
  Transmission Date: 20060218
  Serious: Yes (Hospitalization)
  Sender: FDA-Public Use
  Company Number: US-JNJFOC-20050507240

PATIENT
  Sex: Female
  Weight: 81.65 kg

DRUGS (13)
  1. INFLIXIMAB [Suspect]
     Indication: RHEUMATOID ARTHRITIS
     Route: 042
  2. DIOVAN [Concomitant]
  3. HYDROCHLOROTHIAZIDE [Concomitant]
  4. NEXIUM [Concomitant]
  5. TOPROL-XL [Concomitant]
  6. ZOLOFT [Concomitant]
  7. FOLIC ACID [Concomitant]
  8. METHOTREXATE [Concomitant]
  9. LIPITOR [Concomitant]
  10. AMBIEN [Concomitant]
  11. ASPIRIN [Concomitant]
  12. TYLENOL (CAPLET) [Concomitant]
     Dosage: 650 MG - 1300 MG DAILY
  13. ZANTAC [Concomitant]
     Dosage: 75 MG - 150 MG DAILY

REACTIONS (3)
  - CHEST PAIN [None]
  - GASTRIC ULCER [None]
  - GASTROINTESTINAL HAEMORRHAGE [None]
